FAERS Safety Report 24393657 (Version 3)
Quarter: 2024Q4

REPORT INFORMATION
  Report Type: Spontaneous
  Country: US (occurrence: US)
  Receive Date: 20241003
  Receipt Date: 20241015
  Transmission Date: 20250114
  Serious: Yes (Other)
  Sender: ABBVIE
  Company Number: US-ABBVIE-5943423

PATIENT
  Age: 6 Year
  Sex: Male

DRUGS (14)
  1. CREON [Suspect]
     Active Substance: PANCRELIPASE AMYLASE\PANCRELIPASE LIPASE\PANCRELIPASE PROTEASE
     Indication: Pancreatic failure
     Dosage: DOSE 12,000, 2-3 CAPS WITH Q10-20 GRAMS OF FAT. MAX 17-19 CAPS PER DAY, FORM STRENGTH: 12000 UNIT
     Route: 048
     Dates: start: 20240911
  2. CREON [Suspect]
     Active Substance: PANCRELIPASE AMYLASE\PANCRELIPASE LIPASE\PANCRELIPASE PROTEASE
     Indication: Pancreatic failure
     Dosage: DOSE: 12,000, 2-3 CAPS WITH Q10-20 GRAMS OF FAT. MAX 17-19 CAPS PER DAY, FORM STRENGTH: 12000 UNIT
     Route: 048
  3. CREON [Suspect]
     Active Substance: PANCRELIPASE AMYLASE\PANCRELIPASE LIPASE\PANCRELIPASE PROTEASE
     Indication: Pancreatic failure
     Route: 048
     Dates: start: 201809
  4. CREON [Suspect]
     Active Substance: PANCRELIPASE AMYLASE\PANCRELIPASE LIPASE\PANCRELIPASE PROTEASE
     Indication: Pancreatic failure
     Dosage: ONE CAPSULE WITH A MEAL, FORM STRENGTH: 12000 UNIT
     Route: 048
     Dates: start: 202409
  5. ALBUTEROL [Concomitant]
     Active Substance: ALBUTEROL
     Indication: Cystic fibrosis
     Dosage: DOSE FORM: NEBULES, ROUTE: NEBULIZER, STRENGTH: 2.5MG/3ML, FREQUENCY: Q4H PRN
  6. TRIKAFTA [Concomitant]
     Active Substance: ELEXACAFTOR\IVACAFTOR\TEZACAFTOR
     Indication: Cystic fibrosis
     Dosage: 100-50-75MG/75MG 1 PACKET
     Route: 048
  7. SACCHAROMYCES CEREVISIAE [Concomitant]
     Active Substance: SACCHAROMYCES CEREVISIAE
     Indication: Probiotic therapy
     Dosage: STRENGTH: 250 MG, 1 PACKET
     Route: 048
  8. FLUTICASONE PROPIONATE [Concomitant]
     Active Substance: FLUTICASONE PROPIONATE
     Indication: Multiple allergies
     Dosage: STRENGTH: 50 MG/SPRAY, ROUTE: INTRANASAL
  9. LORATADINE [Concomitant]
     Active Substance: LORATADINE
     Indication: Multiple allergies
     Dosage: STRENGTH: 5 MG/5 ML
     Route: 048
  10. MELATONIN [Concomitant]
     Active Substance: MELATONIN
     Indication: Sleep disorder
     Dosage: STRENGTH: 1 MG/ML, FREQUENCY: HS, DOSE FORM: LIQUID
     Route: 048
  11. METHYLPHENIDATE [Concomitant]
     Active Substance: METHYLPHENIDATE
     Indication: Behaviour disorder
     Dosage: STRENGTH: XR 5 MG/ML,?DOSE FORM: SUSPENSION
     Route: 048
  12. POLYETHYLENE GLYCOL [Concomitant]
     Active Substance: POLYETHYLENE GLYCOL
     Indication: Constipation
     Dosage: STRENGTH: 17GM/DOSE
     Route: 048
  13. SENNA [Concomitant]
     Active Substance: SENNA LEAF\SENNOSIDES\SENNOSIDES A AND B
     Indication: Constipation
     Dosage: DOSE FORM: CHEWABLE, DOSE: 1
     Route: 048
  14. SODIUM CHLORIDE [Concomitant]
     Active Substance: SODIUM CHLORIDE
     Indication: Cystic fibrosis
     Dosage: ROUTE: NEBULIZER, STRENGTH:3%,

REACTIONS (6)
  - Emergency care [Recovering/Resolving]
  - Abdominal rigidity [Recovering/Resolving]
  - Product odour abnormal [Recovering/Resolving]
  - Abdominal discomfort [Unknown]
  - Nausea [Recovering/Resolving]
  - Vomiting [Recovering/Resolving]

NARRATIVE: CASE EVENT DATE: 20240901
